FAERS Safety Report 21274241 (Version 1)
Quarter: 2022Q3

REPORT INFORMATION
  Report Type: Report from Study
  Country: IT (occurrence: IT)
  Receive Date: 20220831
  Receipt Date: 20220831
  Transmission Date: 20221027
  Serious: Yes (Other)
  Sender: FDA-Public Use
  Company Number: IT-ViiV Healthcare Limited-IT2022GSK122349

PATIENT

DRUGS (1)
  1. ZIDOVUDINE [Suspect]
     Active Substance: ZIDOVUDINE
     Indication: Prophylaxis against HIV infection
     Route: 064

REACTIONS (3)
  - HIV infection [Unknown]
  - Human immunodeficiency virus transmission [Unknown]
  - Foetal exposure during pregnancy [Unknown]
